FAERS Safety Report 8953547 (Version 2)
Quarter: 2012Q4

REPORT INFORMATION
  Report Type: 
  Country: US (occurrence: US)
  Receive Date: 20121206
  Receipt Date: 20121212
  Transmission Date: 20130627
  Serious: No
  Sender: FDA-Public Use
  Company Number: US-PFIZER INC-2012301384

PATIENT
  Age: 74 Year
  Sex: Female
  Weight: 58.96 kg

DRUGS (5)
  1. LATANOPROST [Suspect]
     Indication: OPEN ANGLE GLAUCOMA
     Dosage: Unknown dose one drop in each eye once a day
     Route: 047
     Dates: start: 201208, end: 20121122
  2. AMLODIPINE/BENAZEPRIL [Concomitant]
     Dosage: 5/20 mg, UNK
  3. CRESTOR [Concomitant]
     Indication: HIGH CHOLESTEROL
     Dosage: 5 mg, UNK
     Dates: start: 2012
  4. TIMOLOL [Concomitant]
     Dosage: UNK
     Dates: start: 2005
  5. BRIMONIDINE [Concomitant]
     Dosage: UNK
     Route: 047
     Dates: start: 2007

REACTIONS (1)
  - Eye colour change [Not Recovered/Not Resolved]
